FAERS Safety Report 25791568 (Version 1)
Quarter: 2025Q3

REPORT INFORMATION
  Report Type: Spontaneous
  Country: US (occurrence: US)
  Receive Date: 20250911
  Receipt Date: 20250911
  Transmission Date: 20251021
  Serious: Yes (Hospitalization, Other)
  Sender: SANOFI AVENTIS
  Company Number: US-SA-2025SA267205

PATIENT
  Age: 72 Year
  Sex: Female
  Weight: 90.71 kg

DRUGS (17)
  1. DUPIXENT [Suspect]
     Active Substance: DUPILUMAB
     Indication: Dermatitis atopic
     Dosage: 300 MG, QOW
     Route: 058
  2. ATORVASTATIN CALCIUM [Concomitant]
     Active Substance: ATORVASTATIN CALCIUM
  3. BUDESONIDE [Concomitant]
     Active Substance: BUDESONIDE
  4. MONTELUKAST SODIUM [Concomitant]
     Active Substance: MONTELUKAST SODIUM
  5. LEVETIRACETAM [Concomitant]
     Active Substance: LEVETIRACETAM
  6. DIGOXIN [Concomitant]
     Active Substance: DIGOXIN
  7. PROTONIX [Concomitant]
     Active Substance: PANTOPRAZOLE SODIUM
  8. BISOPROLOL FUMARATE [Concomitant]
     Active Substance: BISOPROLOL FUMARATE
  9. JARDIANCE [Concomitant]
     Active Substance: EMPAGLIFLOZIN
  10. VYZULTA [Concomitant]
     Active Substance: LATANOPROSTENE BUNOD
  11. FLUTICASONE FUROATE\SALMETEROL XINAFOATE [Concomitant]
     Active Substance: FLUTICASONE FUROATE\SALMETEROL XINAFOATE
  12. SYSTANE (HYPROMELLOSE 2910 (4000 MPA.S)) [Concomitant]
     Active Substance: HYPROMELLOSE 2910 (4000 MPA.S)
  13. MESALAMINE [Concomitant]
     Active Substance: MESALAMINE
  14. HYDROCORTISONE [Concomitant]
     Active Substance: HYDROCORTISONE
  15. PSYLLIUM HUSK [Concomitant]
     Active Substance: PSYLLIUM HUSK
  16. MAGNESIUM [Concomitant]
     Active Substance: MAGNESIUM
  17. LEVOTHYROXINE SODIUM [Concomitant]
     Active Substance: LEVOTHYROXINE SODIUM

REACTIONS (8)
  - Cardiac ventricular thrombosis [Unknown]
  - Transient ischaemic attack [Unknown]
  - Colitis ulcerative [Recovered/Resolved]
  - Diarrhoea [Recovered/Resolved]
  - Speech disorder [Unknown]
  - Total lung capacity abnormal [Unknown]
  - Medical device site reaction [Unknown]
  - Dizziness [Recovered/Resolved]

NARRATIVE: CASE EVENT DATE: 20250601
